FAERS Safety Report 4938359-9 (Version None)
Quarter: 2006Q1

REPORT INFORMATION
  Report Type: 
  Country: None (occurrence: None)
  Receive Date: 20060309
  Receipt Date: 20060223
  Transmission Date: 20060701
  Serious: Yes (Hospitalization)
  Sender: FDA-Public Use
  Company Number: US-JNJFOC-20051203375

PATIENT
  Sex: Female
  Weight: 75.3 kg

DRUGS (5)
  1. ORTHO EVRA [Suspect]
     Indication: MENOMETRORRHAGIA
     Route: 062
  2. TOPROL-XL [Concomitant]
     Indication: BLOOD PRESSURE
  3. VITAMIN B-12 [Concomitant]
  4. DARVOCET [Concomitant]
     Route: 048
  5. DARVOCET [Concomitant]
     Indication: PAIN
     Route: 048

REACTIONS (4)
  - MENORRHAGIA [None]
  - OFF LABEL USE [None]
  - PROTEIN S DECREASED [None]
  - TRANSIENT ISCHAEMIC ATTACK [None]
